FAERS Safety Report 6234632-5 (Version None)
Quarter: 2009Q2

REPORT INFORMATION
  Report Type: 
  Country: None (occurrence: None)
  Receive Date: 20090615
  Receipt Date: 20090609
  Transmission Date: 20091009
  Serious: Yes (Hospitalization, Other)
  Sender: FDA-Public Use
  Company Number: FR-WYE-G03820509

PATIENT
  Age: 45 Year
  Sex: Female

DRUGS (7)
  1. RHINADVIL (IBUPROFEN/PSEUDOEPHEDRINE HYDROCHLORIDE, TABLET) [Suspect]
     Indication: SINUSITIS
     Route: 048
     Dates: start: 20071009
  2. DAFALGAN (PARACETAMOL, , 0) [Suspect]
     Route: 048
     Dates: start: 20071009
  3. HELICIDINE (HELICIDINE, , 0) [Suspect]
     Indication: COUGH
     Route: 048
     Dates: start: 20071009
  4. DEXTROMETHORPHAN HYDROBROMIDE [Suspect]
     Indication: COUGH
     Dosage: ONE-DOSE FORM
     Route: 048
     Dates: start: 20071009, end: 20071009
  5. PNEUMOREL (FENSPIRIDE HYDROCHLORIDE) [Concomitant]
  6. PAROXETINE HCL [Concomitant]
  7. ATARAX [Concomitant]

REACTIONS (3)
  - C-REACTIVE PROTEIN INCREASED [None]
  - DYSPNOEA [None]
  - PALATAL OEDEMA [None]
